FAERS Safety Report 5801687-9 (Version None)
Quarter: 2008Q3

REPORT INFORMATION
  Report Type: 
  Country: None (occurrence: None)
  Receive Date: 20080707
  Receipt Date: 20080623
  Transmission Date: 20090109
  Serious: Yes (Hospitalization)
  Sender: FDA-Public Use
  Company Number: B0526193A

PATIENT
  Age: 5 Year
  Sex: Male
  Weight: 23.3 kg

DRUGS (2)
  1. LAMICTAL [Suspect]
     Dosage: 50MG TWICE PER DAY
     Route: 065
     Dates: start: 20071008
  2. NEURONTIN [Suspect]
     Dosage: 800MG PER DAY
     Route: 048
     Dates: start: 20080204, end: 20080226

REACTIONS (12)
  - ABDOMINAL PAIN [None]
  - ANOREXIA [None]
  - CONSTIPATION [None]
  - DISSOCIATION [None]
  - DYSKINESIA [None]
  - EPILEPSY [None]
  - FAECALOMA [None]
  - HEMIPARESIS [None]
  - INFLUENZA [None]
  - MIDDLE INSOMNIA [None]
  - POOR QUALITY SLEEP [None]
  - RISUS SARDONICUS [None]
